FAERS Safety Report 18463717 (Version 7)
Quarter: 2022Q1

REPORT INFORMATION
  Report Type: Report from Study
  Country: FR (occurrence: FR)
  Receive Date: 20201104
  Receipt Date: 20220126
  Transmission Date: 20220423
  Serious: Yes (Hospitalization, Other)
  Sender: FDA-Public Use
  Company Number: FR-TAKEDA-2020TUS046035

PATIENT
  Age: 64 Year
  Sex: Female

DRUGS (38)
  1. TEDUGLUTIDE [Suspect]
     Active Substance: TEDUGLUTIDE
     Indication: Short-bowel syndrome
     Dosage: 3.6 MILLIGRAM (0.05 MG/KG DAILY DOSE), TED DOSES PER WEEK 7
     Route: 065
     Dates: start: 20161004, end: 20161103
  2. TEDUGLUTIDE [Suspect]
     Active Substance: TEDUGLUTIDE
     Indication: Short-bowel syndrome
     Dosage: 3.6 MILLIGRAM (0.05 MG/KG DAILY DOSE), TED DOSES PER WEEK 7
     Route: 065
     Dates: start: 20161004, end: 20161103
  3. TEDUGLUTIDE [Suspect]
     Active Substance: TEDUGLUTIDE
     Indication: Short-bowel syndrome
     Dosage: 3.6 MILLIGRAM (0.05 MG/KG DAILY DOSE), TED DOSES PER WEEK 7
     Route: 065
     Dates: start: 20161004, end: 20161103
  4. TEDUGLUTIDE [Suspect]
     Active Substance: TEDUGLUTIDE
     Indication: Short-bowel syndrome
     Dosage: 3.6 MILLIGRAM (0.05 MG/KG DAILY DOSE), TED DOSES PER WEEK 7
     Route: 065
     Dates: start: 20161004, end: 20161103
  5. TEDUGLUTIDE [Suspect]
     Active Substance: TEDUGLUTIDE
     Dosage: 3.8 MILLIGRAM (0.05 MG/KG DAILY DOSE), TED DOSES PER WEEK 7
     Route: 065
     Dates: start: 20161104, end: 20161208
  6. TEDUGLUTIDE [Suspect]
     Active Substance: TEDUGLUTIDE
     Dosage: 3.8 MILLIGRAM (0.05 MG/KG DAILY DOSE), TED DOSES PER WEEK 7
     Route: 065
     Dates: start: 20161104, end: 20161208
  7. TEDUGLUTIDE [Suspect]
     Active Substance: TEDUGLUTIDE
     Dosage: 3.8 MILLIGRAM (0.05 MG/KG DAILY DOSE), TED DOSES PER WEEK 7
     Route: 065
     Dates: start: 20161104, end: 20161208
  8. TEDUGLUTIDE [Suspect]
     Active Substance: TEDUGLUTIDE
     Dosage: 3.8 MILLIGRAM (0.05 MG/KG DAILY DOSE), TED DOSES PER WEEK 7
     Route: 065
     Dates: start: 20161104, end: 20161208
  9. TEDUGLUTIDE [Suspect]
     Active Substance: TEDUGLUTIDE
     Dosage: 3.6 MILLIGRAM (0.05 MG/KG DAILY DOSE), TED DOSES PER WEEK 7
     Route: 065
     Dates: start: 20161209, end: 20170403
  10. TEDUGLUTIDE [Suspect]
     Active Substance: TEDUGLUTIDE
     Dosage: 3.6 MILLIGRAM (0.05 MG/KG DAILY DOSE), TED DOSES PER WEEK 7
     Route: 065
     Dates: start: 20161209, end: 20170403
  11. TEDUGLUTIDE [Suspect]
     Active Substance: TEDUGLUTIDE
     Dosage: 3.6 MILLIGRAM (0.05 MG/KG DAILY DOSE), TED DOSES PER WEEK 7
     Route: 065
     Dates: start: 20161209, end: 20170403
  12. TEDUGLUTIDE [Suspect]
     Active Substance: TEDUGLUTIDE
     Dosage: 3.6 MILLIGRAM (0.05 MG/KG DAILY DOSE), TED DOSES PER WEEK 7
     Route: 065
     Dates: start: 20161209, end: 20170403
  13. TEDUGLUTIDE [Suspect]
     Active Substance: TEDUGLUTIDE
     Dosage: 3.4 MILLIGRAM (0.05 MG/KG DAILY DOSE), TED DOSES PER WEEK 7
     Route: 065
     Dates: start: 20170404, end: 20171016
  14. TEDUGLUTIDE [Suspect]
     Active Substance: TEDUGLUTIDE
     Dosage: 3.4 MILLIGRAM (0.05 MG/KG DAILY DOSE), TED DOSES PER WEEK 7
     Route: 065
     Dates: start: 20170404, end: 20171016
  15. TEDUGLUTIDE [Suspect]
     Active Substance: TEDUGLUTIDE
     Dosage: 3.4 MILLIGRAM (0.05 MG/KG DAILY DOSE), TED DOSES PER WEEK 7
     Route: 065
     Dates: start: 20170404, end: 20171016
  16. TEDUGLUTIDE [Suspect]
     Active Substance: TEDUGLUTIDE
     Dosage: 3.4 MILLIGRAM (0.05 MG/KG DAILY DOSE), TED DOSES PER WEEK 7
     Route: 065
     Dates: start: 20170404, end: 20171016
  17. TEDUGLUTIDE [Suspect]
     Active Substance: TEDUGLUTIDE
     Dosage: 3.2 MILLIGRAM (0.05 MG/KG DAILY DOSE), TED DOSES PER WEEK 7
     Route: 065
     Dates: start: 20171017, end: 20180129
  18. TEDUGLUTIDE [Suspect]
     Active Substance: TEDUGLUTIDE
     Dosage: 3.2 MILLIGRAM (0.05 MG/KG DAILY DOSE), TED DOSES PER WEEK 7
     Route: 065
     Dates: start: 20171017, end: 20180129
  19. TEDUGLUTIDE [Suspect]
     Active Substance: TEDUGLUTIDE
     Dosage: 3.2 MILLIGRAM (0.05 MG/KG DAILY DOSE), TED DOSES PER WEEK 7
     Route: 065
     Dates: start: 20171017, end: 20180129
  20. TEDUGLUTIDE [Suspect]
     Active Substance: TEDUGLUTIDE
     Dosage: 3.2 MILLIGRAM (0.05 MG/KG DAILY DOSE), TED DOSES PER WEEK 7
     Route: 065
     Dates: start: 20171017, end: 20180129
  21. TEDUGLUTIDE [Suspect]
     Active Substance: TEDUGLUTIDE
     Dosage: 3 MILLIGRAM (0.05 MG/KG DAILY DOSE), TED DOSES PER WEEK 7
     Route: 065
     Dates: start: 20180130, end: 20180219
  22. TEDUGLUTIDE [Suspect]
     Active Substance: TEDUGLUTIDE
     Dosage: 3 MILLIGRAM (0.05 MG/KG DAILY DOSE), TED DOSES PER WEEK 7
     Route: 065
     Dates: start: 20180130, end: 20180219
  23. TEDUGLUTIDE [Suspect]
     Active Substance: TEDUGLUTIDE
     Dosage: 3 MILLIGRAM (0.05 MG/KG DAILY DOSE), TED DOSES PER WEEK 7
     Route: 065
     Dates: start: 20180130, end: 20180219
  24. TEDUGLUTIDE [Suspect]
     Active Substance: TEDUGLUTIDE
     Dosage: 3 MILLIGRAM (0.05 MG/KG DAILY DOSE), TED DOSES PER WEEK 7
     Route: 065
     Dates: start: 20180130, end: 20180219
  25. TEDUGLUTIDE [Suspect]
     Active Substance: TEDUGLUTIDE
     Dosage: 3 MILLIGRAM (0.05 MG/KG DAILY DOSE), TED DOSES PER WEEK 7
     Route: 065
     Dates: start: 20180308, end: 20180313
  26. TEDUGLUTIDE [Suspect]
     Active Substance: TEDUGLUTIDE
     Dosage: 3 MILLIGRAM (0.05 MG/KG DAILY DOSE), TED DOSES PER WEEK 7
     Route: 065
     Dates: start: 20180308, end: 20180313
  27. TEDUGLUTIDE [Suspect]
     Active Substance: TEDUGLUTIDE
     Dosage: 3 MILLIGRAM (0.05 MG/KG DAILY DOSE), TED DOSES PER WEEK 7
     Route: 065
     Dates: start: 20180308, end: 20180313
  28. TEDUGLUTIDE [Suspect]
     Active Substance: TEDUGLUTIDE
     Dosage: 3 MILLIGRAM (0.05 MG/KG DAILY DOSE), TED DOSES PER WEEK 7
     Route: 065
     Dates: start: 20180308, end: 20180313
  29. LASIX [Concomitant]
     Active Substance: FUROSEMIDE
     Indication: Hyperkalaemia
     Dosage: 1 UNK, QD
     Route: 065
     Dates: start: 20180308, end: 20180308
  30. INSULIN NOS [Concomitant]
     Active Substance: INSULIN NOS
     Indication: Hyperkalaemia
     Dosage: 10 INTERNATIONAL UNIT, QD
     Dates: start: 20180218, end: 20180218
  31. INSULIN NOS [Concomitant]
     Active Substance: INSULIN NOS
     Dosage: 1 UNK
     Dates: start: 20180308, end: 20180308
  32. SODIUM CHLORIDE [Concomitant]
     Active Substance: SODIUM CHLORIDE
     Indication: Hyponatraemia
     Dosage: 4 LITER
     Route: 042
     Dates: start: 201802, end: 201802
  33. SODIUM CHLORIDE [Concomitant]
     Active Substance: SODIUM CHLORIDE
     Dosage: 30 MILLIGRAM/KILOGRAM, QD
     Route: 042
     Dates: start: 20200901, end: 20200911
  34. POTASSIUM [Concomitant]
     Active Substance: POTASSIUM
     Indication: Hypokalaemia
     Dosage: 5 GRAM, PER 5 HOURS
     Route: 042
     Dates: start: 20200901, end: 20200911
  35. FENOFIBRATE [Concomitant]
     Active Substance: FENOFIBRATE
     Indication: Hypertriglyceridaemia
     Dosage: 1 DOSAGE FORM, QD
     Route: 048
     Dates: start: 2021
  36. VITAMIN C [Concomitant]
     Active Substance: ASCORBIC ACID
     Indication: Hypovitaminosis
     Dosage: 1 DOSAGE FORM, QD
     Route: 042
     Dates: start: 20210610, end: 20210610
  37. AMIKACIN [Concomitant]
     Active Substance: AMIKACIN
     Indication: Vascular device infection
     Dosage: UNK UNK, QD
     Route: 065
     Dates: start: 20200630, end: 202007
  38. CEFTRIAXONE [Concomitant]
     Active Substance: CEFTRIAXONE
     Indication: Sepsis
     Dosage: 2 GRAM, QD
     Route: 048
     Dates: start: 20200628, end: 20200705

REACTIONS (6)
  - Altered state of consciousness [Recovered/Resolved]
  - Vascular device infection [Recovered/Resolved]
  - Hypokalaemia [Recovered/Resolved]
  - Sepsis [Recovered/Resolved]
  - Hypovitaminosis [Recovered/Resolved]
  - Abdominal pain [Recovered/Resolved]

NARRATIVE: CASE EVENT DATE: 20200627
